FAERS Safety Report 4971249-4 (Version None)
Quarter: 2006Q2

REPORT INFORMATION
  Report Type: 
  Country: None (occurrence: None)
  Receive Date: 20060413
  Receipt Date: 20050928
  Transmission Date: 20061013
  Serious: Yes (Hospitalization, Other)
  Sender: FDA-Public Use
  Company Number: ZA-MERCK-0510ZAF00001

PATIENT
  Sex: Female

DRUGS (1)
  1. VIOXX [Suspect]
     Indication: JOINT DISLOCATION
     Route: 048
     Dates: start: 20030421

REACTIONS (1)
  - PULMONARY EMBOLISM [None]
